FAERS Safety Report 13742001 (Version 1)
Quarter: 2017Q3

REPORT INFORMATION
  Report Type: Spontaneous
  Country: DE (occurrence: DE)
  Receive Date: 20170711
  Receipt Date: 20170711
  Transmission Date: 20171127
  Serious: Yes (Other)
  Sender: FDA-Public Use
  Company Number: DE-BAYER-2017-128182

PATIENT
  Age: 39 Year
  Sex: Female

DRUGS (1)
  1. JAYDESS [Suspect]
     Active Substance: LEVONORGESTREL
     Dosage: 14 MCG/24HR, CONT
     Route: 015
     Dates: start: 20160426, end: 20170524

REACTIONS (5)
  - Disturbance in attention [None]
  - Thyroiditis [None]
  - Weight increased [None]
  - Oedema [None]
  - Fatigue [None]

NARRATIVE: CASE EVENT DATE: 201605
